FAERS Safety Report 5025777-6 (Version None)
Quarter: 2006Q2

REPORT INFORMATION
  Report Type: 
  Country: None (occurrence: None)
  Receive Date: 20060609
  Receipt Date: 20060609
  Transmission Date: 20061013
  Serious: Yes (Other)
  Sender: FDA-Public Use
  Company Number: None

PATIENT
  Age: 75 Year
  Sex: Female
  Weight: 117 kg

DRUGS (1)
  1. CEFOXITIN [Suspect]
     Indication: CELLULITIS
     Dosage: 2 GRAM EVERY 24 HOURS IV BOLUS
     Route: 040
     Dates: start: 20060513, end: 20060606

REACTIONS (1)
  - PAIN IN EXTREMITY [None]
